FAERS Safety Report 5216654-6 (Version None)
Quarter: 2007Q1

REPORT INFORMATION
  Report Type: 
  Country: None (occurrence: None)
  Receive Date: 20061130
  Receipt Date: 20060613
  Transmission Date: 20070707
  Serious: Yes (Other)
  Sender: FDA-Public Use
  Company Number: US200606003640

PATIENT
  Age: 53 Year
  Sex: Male

DRUGS (1)
  1. ZYPREXA [Suspect]
     Indication: SCHIZOPHRENIA
     Dosage: ORAL
     Route: 048
     Dates: start: 19980101, end: 20060101

REACTIONS (4)
  - DEPENDENCE [None]
  - DRUG WITHDRAWAL SYNDROME [None]
  - FEELING ABNORMAL [None]
  - WEIGHT INCREASED [None]
